FAERS Safety Report 20751713 (Version 2)
Quarter: 2022Q2

REPORT INFORMATION
  Report Type: Spontaneous
  Country: AU (occurrence: AU)
  Receive Date: 20220426
  Receipt Date: 20220502
  Transmission Date: 20220721
  Serious: Yes (Other)
  Sender: FDA-Public Use
  Company Number: AU-PFIZER INC-202200598308

PATIENT
  Age: 58 Year
  Sex: Female

DRUGS (8)
  1. CLOZAPINE [Suspect]
     Active Substance: CLOZAPINE
     Dosage: UNK
     Dates: start: 20020923
  2. CLOZAPINE [Suspect]
     Active Substance: CLOZAPINE
     Dosage: UNK
     Dates: start: 20150113
  3. CLOZAPINE [Suspect]
     Active Substance: CLOZAPINE
     Dosage: 600 MG
  4. SERTRALINE HYDROCHLORIDE [Suspect]
     Active Substance: SERTRALINE HYDROCHLORIDE
     Dosage: 100 MG, 1X/DAY(MANE)
  5. DAPIPRAZOLE HYDROCHLORIDE [Suspect]
     Active Substance: DAPIPRAZOLE HYDROCHLORIDE
     Dosage: 30 MG, 1X/DAY(MANE)
  6. QUETIAPINE [Suspect]
     Active Substance: QUETIAPINE
     Dosage: 50 MG, 1X/DAY(NOCTE)
  7. ALBUTEROL [Suspect]
     Active Substance: ALBUTEROL
     Indication: Chronic obstructive pulmonary disease
     Dosage: PRN
  8. ARIPIPRAZOLE [Suspect]
     Active Substance: ARIPIPRAZOLE
     Dosage: MANE

REACTIONS (15)
  - Electrocardiogram PR shortened [Unknown]
  - Mitral valve incompetence [Unknown]
  - Tricuspid valve incompetence [Unknown]
  - Pulmonary valve incompetence [Unknown]
  - Defect conduction intraventricular [Unknown]
  - Pericardial effusion [Unknown]
  - Bronchitis [Unknown]
  - Chest pain [Unknown]
  - Left ventricular dysfunction [Unknown]
  - Blood glucose decreased [Unknown]
  - Ejection fraction decreased [Unknown]
  - Sinus tachycardia [Unknown]
  - Bundle branch block right [Unknown]
  - C-reactive protein increased [Unknown]
  - Inflammation [Unknown]
